FAERS Safety Report 9058455 (Version 1)
Quarter: 2013Q1

REPORT INFORMATION
  Report Type: Spontaneous
  Country: IN (occurrence: None)
  Receive Date: 20130117
  Receipt Date: 20130117
  Transmission Date: 20140127
  Serious: Yes (Life-Threatening, Other)
  Sender: FDA-Public Use
  Company Number: 2013P1000440

PATIENT
  Age: 12 Year
  Sex: Male

DRUGS (1)
  1. LAMOTRIGINE [Suspect]
     Indication: PARTIAL SEIZURES
     Dates: start: 200909

REACTIONS (4)
  - Rash macular [None]
  - Skin hyperpigmentation [None]
  - Scratch [None]
  - Vanishing bile duct syndrome [None]
